FAERS Safety Report 13622243 (Version 1)
Quarter: 2017Q2

REPORT INFORMATION
  Report Type: Spontaneous
  Country: US (occurrence: US)
  Receive Date: 20170607
  Receipt Date: 20170607
  Transmission Date: 20170830
  Serious: No
  Sender: FDA-Public Use
  Company Number: US-ROCHE-1423949

PATIENT
  Sex: Male

DRUGS (2)
  1. FUZEON [Suspect]
     Active Substance: ENFUVIRTIDE
     Route: 058
     Dates: start: 2013
  2. FUZEON [Suspect]
     Active Substance: ENFUVIRTIDE
     Indication: HIV INFECTION
     Dosage: TWICE A DAY
     Route: 058
     Dates: start: 20140619

REACTIONS (5)
  - Injection site nodule [Not Recovered/Not Resolved]
  - Visual impairment [Unknown]
  - Feeling cold [Not Recovered/Not Resolved]
  - Abdominal pain [Unknown]
  - Malaise [Unknown]
